FAERS Safety Report 9758113 (Version 1)
Quarter: 2013Q4

REPORT INFORMATION
  Report Type: Spontaneous
  Country: US (occurrence: US)
  Receive Date: 20131216
  Receipt Date: 20131216
  Transmission Date: 20140711
  Serious: Yes (Other)
  Sender: FDA-Public Use
  Company Number: US-JNJFOC-20131204800

PATIENT
  Age: 66 Year
  Sex: Male
  Weight: 68.04 kg

DRUGS (11)
  1. XARELTO [Suspect]
     Indication: CEREBROVASCULAR ACCIDENT PROPHYLAXIS
     Dosage: STRENGTH: 20 MG
     Route: 048
     Dates: start: 201101, end: 20130514
  2. XARELTO [Suspect]
     Indication: ATRIAL FIBRILLATION
     Dosage: STRENGTH: 20 MG
     Route: 048
     Dates: start: 201101, end: 20130514
  3. ALTACE [Concomitant]
     Indication: HYPERTENSION
     Dosage: STRENGTH: 10 MG
     Route: 048
     Dates: start: 1998
  4. NIASPAN [Concomitant]
     Indication: HIGH DENSITY LIPOPROTEIN
     Dosage: STRENGTH: 1500 MG
     Route: 048
     Dates: start: 2011
  5. LIPITOR [Concomitant]
     Indication: LOW DENSITY LIPOPROTEIN
     Dosage: STRENGTH: 10 MG
     Route: 048
     Dates: start: 2011
  6. ZIAC [Concomitant]
     Indication: BLOOD PRESSURE
     Dosage: STRENGTH: 5 MG
     Route: 048
     Dates: start: 1998
  7. MAGNESIUM [Concomitant]
     Indication: NUTRITIONAL SUPPLEMENTATION
     Route: 048
     Dates: start: 2011
  8. CALCIUM [Concomitant]
     Indication: NUTRITIONAL SUPPLEMENTATION
     Route: 048
     Dates: start: 2011
  9. CENTRUM SILVER [Concomitant]
     Indication: NUTRITIONAL SUPPLEMENTATION
     Route: 048
     Dates: start: 2011
  10. CENTRUM CARDIO [Concomitant]
     Indication: NUTRITIONAL SUPPLEMENTATION
     Route: 048
     Dates: start: 2011
  11. ZINC [Concomitant]
     Indication: NUTRITIONAL SUPPLEMENTATION
     Route: 048
     Dates: start: 2011

REACTIONS (1)
  - Cardiac ablation [Recovered/Resolved]
